FAERS Safety Report 10181814 (Version 1)
Quarter: 2014Q2

REPORT INFORMATION
  Report Type: Spontaneous
  Country: ES (occurrence: ES)
  Receive Date: 20140519
  Receipt Date: 20140519
  Transmission Date: 20141212
  Serious: Yes (Other)
  Sender: FDA-Public Use
  Company Number: ES-WATSON-2014-10179

PATIENT
  Age: 74 Year
  Sex: Female

DRUGS (7)
  1. DIPYRIDAMOLE [Suspect]
     Indication: SINGLE PHOTON EMISSION COMPUTERISED TOMOGRAM
     Dosage: SINGLE DOSE
     Route: 065
  2. HEPARIN [Concomitant]
     Indication: ANGINA UNSTABLE
     Dosage: 1 MG/KG/KG TWICE DAILY
     Route: 065
  3. CLOPIDOGREL [Concomitant]
     Indication: ANGINA UNSTABLE
     Dosage: UNKNOWN
     Route: 065
  4. CARVEDILOL [Concomitant]
     Indication: ANGINA UNSTABLE
     Dosage: UNKNOWN
     Route: 065
  5. ATORVASTATIN [Concomitant]
     Indication: ANGINA UNSTABLE
     Dosage: UNKNOWN
     Route: 065
  6. TICLOPIDINE [Concomitant]
     Indication: PRODUCT USED FOR UNKNOWN INDICATION
     Dosage: UNKNOWN
     Route: 065
  7. LORAZEPAM [Concomitant]
     Indication: PRODUCT USED FOR UNKNOWN INDICATION
     Dosage: UNKNOWN
     Route: 065

REACTIONS (3)
  - Pituitary haemorrhage [Not Recovered/Not Resolved]
  - Angina pectoris [None]
  - Disease recurrence [None]
